FAERS Safety Report 16344703 (Version 2)
Quarter: 2019Q2

REPORT INFORMATION
  Report Type: Report from Study
  Country: FR (occurrence: FR)
  Receive Date: 20190522
  Receipt Date: 20190528
  Transmission Date: 20190711
  Serious: Yes (Death, Hospitalization, Other)
  Sender: FDA-Public Use
  Company Number: PHHY2019FR116279

PATIENT
  Age: 28 Year
  Sex: Male
  Weight: 71 kg

DRUGS (1)
  1. CTL019 [Suspect]
     Active Substance: TISAGENLECLEUCEL
     Indication: LYMPHOMA
     Dosage: 2.2418X10^8
     Route: 042
     Dates: start: 20181029

REACTIONS (12)
  - Acute respiratory failure [Fatal]
  - Malignant neoplasm progression [Unknown]
  - Haemodynamic instability [Unknown]
  - Cytokine release syndrome [Recovered/Resolved]
  - Dyspnoea [Recovered/Resolved]
  - Lymphoma [Unknown]
  - Chest pain [Recovered/Resolved]
  - Confusional state [Recovered/Resolved]
  - Cardiac failure [Unknown]
  - Disorientation [Recovered/Resolved]
  - Hypogammaglobulinaemia [Not Recovered/Not Resolved]
  - Pyrexia [Recovered/Resolved]

NARRATIVE: CASE EVENT DATE: 20181102
